FAERS Safety Report 16572804 (Version 1)
Quarter: 2019Q3

REPORT INFORMATION
  Report Type: Report from Study
  Country: US (occurrence: US)
  Receive Date: 20190715
  Receipt Date: 20190715
  Transmission Date: 20191004
  Serious: Yes (Hospitalization)
  Sender: FDA-Public Use
  Company Number: US-UCBSA-2019029151

PATIENT
  Age: 29 Year
  Sex: Female

DRUGS (3)
  1. LEVETIRACETAM. [Suspect]
     Active Substance: LEVETIRACETAM
     Indication: PARTIAL SEIZURES
     Dosage: UNK
  2. VIMPAT [Suspect]
     Active Substance: LACOSAMIDE
     Indication: PRODUCT USED FOR UNKNOWN INDICATION
     Dosage: 100 MILLIGRAM, 2X/DAY (BID)
     Route: 048
  3. FLUDROCORTISONE [Concomitant]
     Active Substance: FLUDROCORTISONE
     Indication: PRODUCT USED FOR UNKNOWN INDICATION
     Dosage: UNK
     Route: 048

REACTIONS (8)
  - Eating disorder [Unknown]
  - Circulatory collapse [Not Recovered/Not Resolved]
  - Stress [Not Recovered/Not Resolved]
  - Drug intolerance [Unknown]
  - Premenstrual syndrome [Not Recovered/Not Resolved]
  - Seizure [Not Recovered/Not Resolved]
  - Abnormal behaviour [Unknown]
  - Syncope [Not Recovered/Not Resolved]

NARRATIVE: CASE EVENT DATE: 201706
